FAERS Safety Report 20738370 (Version 1)
Quarter: 2022Q2

REPORT INFORMATION
  Report Type: Spontaneous
  Country: US (occurrence: US)
  Receive Date: 20220422
  Receipt Date: 20220422
  Transmission Date: 20220720
  Serious: Yes (Death, Other)
  Sender: FDA-Public Use
  Company Number: US-AMGEN-USASP2022068179

PATIENT
  Age: 68 Year
  Sex: Female

DRUGS (6)
  1. FILGRASTIM [Suspect]
     Active Substance: FILGRASTIM
     Indication: Neutropenia
     Dosage: 300 MICROGRAM
     Route: 065
  2. FILGRASTIM [Suspect]
     Active Substance: FILGRASTIM
     Indication: Agranulocytosis
  3. FILGRASTIM [Suspect]
     Active Substance: FILGRASTIM
     Indication: Off label use
  4. METHIMAZOLE [Concomitant]
     Active Substance: METHIMAZOLE
     Dosage: 10 MILLIGRAM, BID
  5. VANCOMYCIN [Concomitant]
     Active Substance: VANCOMYCIN
  6. CEFEPIME [Concomitant]
     Active Substance: CEFEPIME HYDROCHLORIDE

REACTIONS (10)
  - Pseudomonas infection [Fatal]
  - Multiple organ dysfunction syndrome [Fatal]
  - Anuria [Fatal]
  - Aspergillus infection [Fatal]
  - Mucormycosis [Fatal]
  - Escherichia infection [Fatal]
  - Bone marrow infiltration [Unknown]
  - Lung infiltration [Unknown]
  - Drug ineffective for unapproved indication [Unknown]
  - Off label use [Unknown]
